FAERS Safety Report 8888811 (Version 1)
Quarter: 2012Q4

REPORT INFORMATION
  Report Type: 
  Country: MX (occurrence: MX)
  Receive Date: 20121106
  Receipt Date: 20121106
  Transmission Date: 20130627
  Serious: Yes (Death, Hospitalization, Other)
  Sender: FDA-Public Use
  Company Number: PHHY2012MX020149

PATIENT
  Age: 78 None
  Sex: Female

DRUGS (6)
  1. ONBREZ [Suspect]
     Indication: ASTHMA
     Dosage: 1 DF, QD
     Dates: start: 201201
  2. ACLASTA [Suspect]
     Indication: OSTEOPOROSIS
     Dosage: 5 mg, UNK
     Route: 042
     Dates: start: 200902
  3. COMBIVENT [Concomitant]
     Dates: start: 201111
  4. ASPIRIN PROTECT [Concomitant]
  5. SINGULAIR [Concomitant]
     Dates: start: 201111
  6. NUEVO CRM FORTE [Concomitant]

REACTIONS (7)
  - Respiratory failure [Fatal]
  - Infection [Unknown]
  - Vomiting [Unknown]
  - Cerebrovascular accident [Unknown]
  - Foreign body [Recovered/Resolved]
  - Blood triglycerides increased [Unknown]
  - Cough [Recovered/Resolved]
